FAERS Safety Report 7737867-5 (Version None)
Quarter: 2011Q3

REPORT INFORMATION
  Report Type: 
  Country: None (occurrence: None)
  Receive Date: 20110908
  Receipt Date: 20110902
  Transmission Date: 20111222
  Serious: Yes (Hospitalization)
  Sender: FDA-Public Use
  Company Number: PHEH2011US03342

PATIENT
  Sex: Male

DRUGS (5)
  1. COREG [Concomitant]
  2. RECLAST [Suspect]
     Dosage: 5 MG, UNK
     Route: 042
     Dates: start: 20110829
  3. MIDODRINE HYDROCHLORIDE [Concomitant]
  4. PLAVIX [Concomitant]
  5. PREDNISONE [Concomitant]

REACTIONS (9)
  - FALL [None]
  - DEHYDRATION [None]
  - PYREXIA [None]
  - MYALGIA [None]
  - HYPOKINESIA [None]
  - MUSCULOSKELETAL PAIN [None]
  - ARTHRALGIA [None]
  - URINE OUTPUT DECREASED [None]
  - CONTUSION [None]
